FAERS Safety Report 22344639 (Version 1)
Quarter: 2023Q2

REPORT INFORMATION
  Report Type: Spontaneous
  Country: JP (occurrence: JP)
  Receive Date: 20230519
  Receipt Date: 20230519
  Transmission Date: 20230722
  Serious: Yes (Other)
  Sender: FDA-Public Use
  Company Number: JP-ELI_LILLY_AND_COMPANY-JP202305007569AA

PATIENT
  Age: 41 Year
  Sex: Female

DRUGS (6)
  1. CYRAMZA [Suspect]
     Active Substance: RAMUCIRUMAB
     Indication: Gastric cancer
     Dosage: 8 MG/KG, OTHER
     Route: 041
     Dates: start: 20200508, end: 20200701
  2. PACLITAXEL [Suspect]
     Active Substance: PACLITAXEL
     Indication: Gastric cancer
     Dosage: 100 MG, OTHER
     Route: 041
     Dates: start: 20200508, end: 20220701
  3. NAIXAN [NAPROXEN SODIUM] [Concomitant]
     Indication: Tumour associated fever
     Dosage: 300 MG, TID
     Route: 048
     Dates: start: 20200507, end: 20200528
  4. MEROPENEM [Concomitant]
     Active Substance: MEROPENEM
     Indication: Pneumonia
     Dosage: 1 G, TID
     Route: 041
     Dates: start: 20200501, end: 20200514
  5. VANCOMYCIN [Concomitant]
     Active Substance: VANCOMYCIN
     Indication: Pneumonia
     Dosage: 1 G, DAILY
     Route: 041
     Dates: start: 20200502, end: 20200514
  6. OCTREOTIDE [Concomitant]
     Active Substance: OCTREOTIDE
     Indication: Subileus
     Dosage: 300 UG, DAILY
     Route: 058
     Dates: start: 20200420, end: 20200514

REACTIONS (2)
  - Disseminated intravascular coagulation [Not Recovered/Not Resolved]
  - Febrile neutropenia [Recovered/Resolved]

NARRATIVE: CASE EVENT DATE: 20200511
